FAERS Safety Report 15933454 (Version 3)
Quarter: 2019Q1

REPORT INFORMATION
  Report Type: Report from Study
  Country: CH (occurrence: CH)
  Receive Date: 20190207
  Receipt Date: 20190304
  Transmission Date: 20190417
  Serious: Yes (Other)
  Sender: FDA-Public Use
  Company Number: CH-009507513-1803CHE006027

PATIENT
  Age: 21 Year
  Sex: Female
  Weight: 84 kg

DRUGS (5)
  1. DORAVIRINE (+) LAMIVUDINE (+) TENOFOVIR DF [Suspect]
     Active Substance: DORAVIRINE\LAMIVUDINE\TENOFOVIR DISOPROXIL FUMARATE
     Indication: HIV INFECTION
     Dosage: 1 TABLET, QD
     Route: 048
     Dates: start: 20171003, end: 20180320
  2. TRUVADA [Suspect]
     Active Substance: EMTRICITABINE\TENOFOVIR DISOPROXIL FUMARATE
     Indication: HIV INFECTION
     Dosage: 1 TABLET, QD
     Route: 048
     Dates: start: 20180321
  3. LIOSANNE [Suspect]
     Active Substance: ETHINYL ESTRADIOL\GESTODENE
     Indication: CHEMICAL CONTRACEPTION
     Dosage: 1 TABLET, QD; FORMULATION: PILL
     Route: 048
     Dates: start: 201401, end: 20180312
  4. IRON (UNSPECIFIED) [Concomitant]
     Active Substance: IRON
     Indication: IRON DEFICIENCY
     Dosage: 105 MILLIGRAM, QD
     Route: 048
     Dates: start: 201405
  5. ISENTRESS [Suspect]
     Active Substance: RALTEGRAVIR POTASSIUM
     Dosage: 400 MILLIGRAM, BID
     Route: 048
     Dates: start: 20180321

REACTIONS (2)
  - Exposure during pregnancy [Recovered/Resolved]
  - Foetal growth abnormality [Recovered/Resolved]

NARRATIVE: CASE EVENT DATE: 20180208
